FAERS Safety Report 15650665 (Version 1)
Quarter: 2018Q4

REPORT INFORMATION
  Report Type: Spontaneous
  Country: US (occurrence: US)
  Receive Date: 20181123
  Receipt Date: 20181123
  Transmission Date: 20190205
  Serious: Yes (Other)
  Sender: FDA-Public Use
  Company Number: US-ALKEM LABORATORIES LIMITED-US-ALKEM-2018-09485

PATIENT
  Age: 47 Year
  Sex: Female

DRUGS (4)
  1. ABACAVIR/LAMIVUDINE [Concomitant]
     Active Substance: ABACAVIR\LAMIVUDINE
     Indication: HIV INFECTION
     Dosage: UNK
     Route: 065
  2. TRIAMCINOLONE ACETONIDE. [Suspect]
     Active Substance: TRIAMCINOLONE ACETONIDE
     Indication: BACK PAIN
     Dosage: 80 MG, INJECTION
     Route: 008
  3. TRIAMCINOLONE ACETONIDE. [Suspect]
     Active Substance: TRIAMCINOLONE ACETONIDE
     Indication: INTERVERTEBRAL DISC PROTRUSION
  4. RITONAVIR/DARUNAVIR [Suspect]
     Active Substance: DARUNAVIR\RITONAVIR
     Indication: HIV INFECTION
     Dosage: UNK
     Route: 065

REACTIONS (2)
  - Hypercorticoidism [Recovered/Resolved]
  - Drug interaction [Unknown]
